FAERS Safety Report 19577141 (Version 4)
Quarter: 2022Q2

REPORT INFORMATION
  Report Type: Spontaneous
  Country: US (occurrence: US)
  Receive Date: 20210719
  Receipt Date: 20220518
  Transmission Date: 20220721
  Serious: Yes (Other)
  Sender: FDA-Public Use
  Company Number: US-PFIZER INC-2021641893

PATIENT
  Age: 51 Year
  Sex: Male

DRUGS (1)
  1. XELJANZ [Suspect]
     Active Substance: TOFACITINIB CITRATE
     Indication: Colitis ulcerative
     Dosage: 10 MG, 2X/DAY (10 MG TWICE DAILY)
     Route: 048
     Dates: start: 202103

REACTIONS (5)
  - Drug ineffective [Unknown]
  - Anaemia [Unknown]
  - Large intestine polyp [Unknown]
  - Off label use [Unknown]
  - Product dose omission in error [Unknown]
